FAERS Safety Report 23385489 (Version 1)
Quarter: 2024Q1

REPORT INFORMATION
  Report Type: Spontaneous
  Country: US (occurrence: US)
  Receive Date: 20240110
  Receipt Date: 20240110
  Transmission Date: 20240409
  Serious: Yes (Hospitalization)
  Sender: FDA-Public Use
  Company Number: US-BRISTOL-MYERS SQUIBB COMPANY-2024-004208

PATIENT
  Age: 80 Year
  Sex: Male
  Weight: 107.5 kg

DRUGS (1)
  1. REVLIMID [Suspect]
     Active Substance: LENALIDOMIDE
     Indication: Myelodysplastic syndrome
     Dosage: 3WKSON/1WKOFF
     Route: 048
     Dates: start: 20230701

REACTIONS (3)
  - Fluid retention [Unknown]
  - Rash erythematous [Unknown]
  - Fall [Unknown]
